FAERS Safety Report 10171783 (Version 1)
Quarter: 2014Q2

REPORT INFORMATION
  Report Type: Spontaneous
  Country: US (occurrence: US)
  Receive Date: 20140514
  Receipt Date: 20140514
  Transmission Date: 20141212
  Serious: Yes (Hospitalization, Other)
  Sender: FDA-Public Use
  Company Number: US-PAR PHARMACEUTICAL, INC-2014SCPR009046

PATIENT
  Sex: 0

DRUGS (16)
  1. AMIODARONE [Suspect]
     Indication: PRODUCT USED FOR UNKNOWN INDICATION
     Dosage: UNK, UNKNOWN
     Route: 065
  2. CLONAZEPAM [Suspect]
     Indication: PRODUCT USED FOR UNKNOWN INDICATION
     Dosage: UNK, UNKNOWN
     Route: 065
  3. BENZOCAINE [Suspect]
     Indication: PRODUCTIVE COUGH
     Dosage: 15 MG, SINGLE
     Route: 048
  4. BENZOCAINE [Suspect]
     Indication: ECHOCARDIOGRAM
     Dosage: UNK, UNKNOWN
     Route: 061
  5. BENZOCAINE [Suspect]
     Indication: OROPHARYNGEAL PAIN
  6. ATORVASTATIN [Concomitant]
     Indication: PRODUCT USED FOR UNKNOWN INDICATION
     Dosage: UNK, UNKNOWN
     Route: 065
  7. AZITHROMYCIN [Concomitant]
     Indication: PRODUCTIVE COUGH
     Dosage: UNK, UNKNOWN
     Route: 065
  8. CITALOPRAM [Concomitant]
     Indication: PRODUCT USED FOR UNKNOWN INDICATION
     Dosage: UNK, UNKNOWN
     Route: 065
  9. FLUTICASONE [Concomitant]
     Indication: PRODUCT USED FOR UNKNOWN INDICATION
     Dosage: UNK, UNKNOWN
     Route: 065
  10. LEVALBUTEROL                       /01419301/ [Concomitant]
     Indication: PRODUCT USED FOR UNKNOWN INDICATION
     Dosage: UNK, UNKNOWN
     Route: 065
  11. METOPROLOL [Concomitant]
     Indication: PRODUCT USED FOR UNKNOWN INDICATION
     Dosage: UNK, UNKNOWN
     Route: 065
  12. ROPINIROLE [Concomitant]
     Indication: PRODUCT USED FOR UNKNOWN INDICATION
     Dosage: UNK, UNKNOWN
     Route: 065
  13. VANCOMYCIN [Concomitant]
     Indication: BACTERIAL INFECTION
     Dosage: UNK, UNKNOWN
     Route: 065
  14. VANCOMYCIN [Concomitant]
     Indication: ENDOCARDITIS
  15. CEFEPIME [Concomitant]
     Indication: BACTERIAL INFECTION
     Dosage: UNK, UNKNOWN
     Route: 065
  16. CEFEPIME [Concomitant]
     Indication: ENDOCARDITIS

REACTIONS (7)
  - Methaemoglobinaemia [Recovered/Resolved]
  - Endocarditis [Recovered/Resolved]
  - Bacterial infection [Recovered/Resolved]
  - Atrial fibrillation [Recovered/Resolved]
  - Respiratory failure [Recovered/Resolved]
  - Heart rate decreased [Recovered/Resolved]
  - Hypotension [Recovered/Resolved]
